FAERS Safety Report 7286583-5 (Version None)
Quarter: 2011Q1

REPORT INFORMATION
  Report Type: 
  Country: None (occurrence: None)
  Receive Date: 20110210
  Receipt Date: 20110207
  Transmission Date: 20110831
  Serious: No
  Sender: FDA-Public Use
  Company Number: US-PFIZER INC-2011027533

PATIENT
  Sex: Female

DRUGS (2)
  1. LYRICA [Suspect]
     Indication: INSOMNIA
     Dosage: 50 MG, 1X/DAY
  2. LYRICA [Suspect]
     Indication: NEUROPATHY PERIPHERAL
     Dosage: 75 MG, 1X/DAY
     Route: 048

REACTIONS (2)
  - SOMNOLENCE [None]
  - PAIN IN EXTREMITY [None]
